FAERS Safety Report 9630590 (Version 2)
Quarter: 2015Q2

REPORT INFORMATION
  Report Type: Spontaneous
  Country: US (occurrence: None)
  Receive Date: 20131016
  Receipt Date: 20150402
  Transmission Date: 20150821
  Serious: Yes (Death, Hospitalization, Other)
  Sender: FDA-Public Use
  Company Number: 2013-US-001761

PATIENT
  Age: 53 Year
  Sex: Male

DRUGS (4)
  1. PAXIL (PAROXETINE HYDROCHLORIDE) [Concomitant]
  2. FAZACLO [Suspect]
     Active Substance: CLOZAPINE
     Indication: PSYCHOTIC DISORDER
     Route: 048
     Dates: start: 200603
  3. HALDOL (HALOPERIDOL LACTATE) [Concomitant]
     Active Substance: HALOPERIDOL LACTATE
  4. COGENTIN (BENZATROPINE MESILATE) [Concomitant]

REACTIONS (8)
  - Seizure [None]
  - Influenza like illness [None]
  - Dysstasia [None]
  - Cardiac arrest [None]
  - Vomiting [None]
  - Asthenia [None]
  - Nausea [None]
  - Dehydration [None]

NARRATIVE: CASE EVENT DATE: 20130917
